FAERS Safety Report 17146907 (Version 2)
Quarter: 2019Q4

REPORT INFORMATION
  Report Type: Report from Study
  Country: US (occurrence: US)
  Receive Date: 20191212
  Receipt Date: 20191223
  Transmission Date: 20200122
  Serious: Yes (Other)
  Sender: FDA-Public Use
  Company Number: NVSC2019US067110

PATIENT
  Sex: Female
  Weight: 68.03 kg

DRUGS (1)
  1. ENTRESTO [Suspect]
     Active Substance: SACUBITRIL\VALSARTAN
     Indication: CARDIAC FAILURE
     Dosage: 1 DF, BID (24 MG SACUBITRIL/26 MG VALSARTAN)
     Route: 048
     Dates: start: 201909, end: 201909

REACTIONS (5)
  - Cough [Not Recovered/Not Resolved]
  - Hypotension [Unknown]
  - Pleural effusion [Unknown]
  - Lung carcinoma cell type unspecified stage IV [Unknown]
  - Peripheral swelling [Unknown]

NARRATIVE: CASE EVENT DATE: 2019
